FAERS Safety Report 21012520 (Version 2)
Quarter: 2022Q3

REPORT INFORMATION
  Report Type: Spontaneous
  Country: RS (occurrence: RS)
  Receive Date: 20220627
  Receipt Date: 20220708
  Transmission Date: 20221026
  Serious: Yes (Other)
  Sender: FDA-Public Use
  Company Number: RS-Gedeon Richter Plc.-2022_GR_004559

PATIENT
  Sex: Female

DRUGS (1)
  1. LEVONORGESTREL [Suspect]
     Active Substance: LEVONORGESTREL
     Indication: Product used for unknown indication
     Dosage: 52 MG SINGLE, AT AN INITIAL RATE OF 20 MICROGRAM PER 24 HOURS
     Route: 015
     Dates: start: 20201228

REACTIONS (5)
  - Pregnancy with contraceptive device [Unknown]
  - Device expulsion [Unknown]
  - Drug ineffective [Unknown]
  - Abortion induced [Unknown]
  - Device use issue [Unknown]

NARRATIVE: CASE EVENT DATE: 20201228
